FAERS Safety Report 17750459 (Version 1)
Quarter: 2020Q2

REPORT INFORMATION
  Report Type: Spontaneous
  Country: US (occurrence: US)
  Receive Date: 20200505
  Receipt Date: 20200505
  Transmission Date: 20200714
  Serious: Yes (Other)
  Sender: FDA-Public Use
  Company Number: None

PATIENT
  Age: 56 Year
  Sex: Female

DRUGS (15)
  1. HUMULIN N [Concomitant]
     Active Substance: INSULIN HUMAN
  2. MIDODRINE [Concomitant]
     Active Substance: MIDODRINE
  3. ATROVASTATIN [Concomitant]
     Active Substance: ATORVASTATIN CALCIUM
  4. PREDNISONE. [Concomitant]
     Active Substance: PREDNISONE
  5. ALBUTEROL  HFA [Concomitant]
     Active Substance: ALBUTEROL SULFATE
  6. OPSUMIT [Suspect]
     Active Substance: MACITENTAN
     Indication: PULMONARY ARTERIAL HYPERTENSION
     Route: 048
     Dates: start: 202003, end: 202005
  7. TORSEMIDE. [Concomitant]
     Active Substance: TORSEMIDE
  8. SOTALOL. [Concomitant]
     Active Substance: SOTALOL
  9. GABAPENTIN. [Concomitant]
     Active Substance: GABAPENTIN
  10. ADVAIR DISKUS [Concomitant]
     Active Substance: FLUTICASONE PROPIONATE\SALMETEROL XINAFOATE
  11. MAGOX [Concomitant]
  12. FOSAMAX [Concomitant]
     Active Substance: ALENDRONATE SODIUM
  13. ALBUTEROL NEB SOLN [Concomitant]
  14. ATROVENT [Concomitant]
     Active Substance: IPRATROPIUM BROMIDE
  15. METFORMIN [Concomitant]
     Active Substance: METFORMIN HYDROCHLORIDE

REACTIONS (2)
  - Nasal congestion [None]
  - Oedema [None]

NARRATIVE: CASE EVENT DATE: 20200505
